FAERS Safety Report 23388429 (Version 2)
Quarter: 2025Q1

REPORT INFORMATION
  Report Type: Spontaneous
  Country: US (occurrence: US)
  Receive Date: 20240110
  Receipt Date: 20250311
  Transmission Date: 20250409
  Serious: Yes (Other)
  Sender: PFIZER
  Company Number: US-PFIZER INC-202400003744

PATIENT
  Age: 69 Year
  Sex: Male
  Weight: 68.04 kg

DRUGS (7)
  1. PAXLOVID [Suspect]
     Active Substance: NIRMATRELVIR\RITONAVIR
     Indication: COVID-19 treatment
     Dosage: [NIRMATRELVIR 300 MG]/[RITONAVIR 100 MG]; 2X/DAY
     Route: 048
     Dates: start: 20231219
  2. TYLENOL [Concomitant]
     Active Substance: ACETAMINOPHEN
  3. MOTRIN [Concomitant]
     Active Substance: IBUPROFEN
     Route: 042
  4. METOPROLOL FUMARATE [Concomitant]
     Active Substance: METOPROLOL FUMARATE
     Indication: Blood pressure abnormal
  5. CRESTOR [Concomitant]
     Active Substance: ROSUVASTATIN CALCIUM
     Indication: Blood cholesterol abnormal
  6. INSULIN NOS [Concomitant]
     Active Substance: INSULIN NOS
     Indication: Diabetes mellitus
  7. SYNTHROID [Concomitant]
     Active Substance: LEVOTHYROXINE SODIUM
     Indication: Thyroid disorder

REACTIONS (8)
  - Malaise [Unknown]
  - Dysphagia [Unknown]
  - Nausea [Not Recovered/Not Resolved]
  - Illness [Unknown]
  - Retching [Unknown]
  - Vomiting [Unknown]
  - Product size issue [Unknown]
  - Wrong technique in product usage process [Unknown]

NARRATIVE: CASE EVENT DATE: 20231201
